FAERS Safety Report 4875595-4 (Version None)
Quarter: 2006Q1

REPORT INFORMATION
  Report Type: 
  Country: None (occurrence: None)
  Receive Date: 20060109
  Receipt Date: 20051229
  Transmission Date: 20060701
  Serious: Yes (Death)
  Sender: FDA-Public Use
  Company Number: FR-ROCHE-430223

PATIENT
  Age: 50 Year
  Sex: Female

DRUGS (2)
  1. VALIUM [Suspect]
     Indication: ANXIETY
     Route: 048
     Dates: start: 20050706, end: 20050706
  2. VENLAFAXINE HCL [Concomitant]
     Indication: DRUG USE FOR UNKNOWN INDICATION
     Route: 048
     Dates: start: 20050706, end: 20050706

REACTIONS (2)
  - COMPLETED SUICIDE [None]
  - OVERDOSE [None]
